FAERS Safety Report 21023855 (Version 2)
Quarter: 2022Q3

REPORT INFORMATION
  Report Type: Spontaneous
  Country: GB (occurrence: GB)
  Receive Date: 20220629
  Receipt Date: 20220711
  Transmission Date: 20221026
  Serious: Yes (Other)
  Sender: FDA-Public Use
  Company Number: GB-MYLANLABS-2022M1048791

PATIENT
  Sex: Male

DRUGS (4)
  1. CLOZARIL [Suspect]
     Active Substance: CLOZAPINE
     Indication: Schizophrenia
     Dosage: UNK
     Route: 048
     Dates: start: 20000317, end: 20220618
  2. CLOZARIL [Suspect]
     Active Substance: CLOZAPINE
     Dosage: 300 MILLIGRAM, HS (300MG ON)
     Route: 065
  3. CLOZARIL [Suspect]
     Active Substance: CLOZAPINE
     Dosage: UNK, (50MG OM + 75MG ON)
     Route: 065
     Dates: start: 20220629
  4. NICOTINE [Concomitant]
     Active Substance: NICOTINE
     Indication: Smoking cessation therapy
     Dosage: 21 MILLIGRAM, QD (21MG OD)
     Route: 065

REACTIONS (6)
  - Schizophrenia [Unknown]
  - Therapy interrupted [Unknown]
  - Salivary hypersecretion [Unknown]
  - Tremor [Unknown]
  - Treatment noncompliance [Unknown]
  - Constipation [Unknown]
